FAERS Safety Report 4269831-5 (Version None)
Quarter: 2004Q1

REPORT INFORMATION
  Report Type: 
  Country: None (occurrence: None)
  Receive Date: 20040112
  Receipt Date: 20031229
  Transmission Date: 20041129
  Serious: Yes (Other)
  Sender: FDA-Public Use
  Company Number: HQWYE158518NOV03

PATIENT
  Age: 47 Year
  Sex: Female
  Weight: 56.75 kg

DRUGS (2)
  1. PROTONIX [Suspect]
     Indication: HIATUS HERNIA
     Dosage: 40 MG 1X PER 1 DAY, ORAL
     Route: 048
     Dates: start: 20031113, end: 20031117
  2. PREMARIN [Concomitant]

REACTIONS (7)
  - HYPOAESTHESIA [None]
  - OEDEMA PERIPHERAL [None]
  - PHARYNGEAL OEDEMA [None]
  - PRURITUS [None]
  - SWELLING FACE [None]
  - SWOLLEN TONGUE [None]
  - VISION BLURRED [None]
